FAERS Safety Report 19051961 (Version 2)
Quarter: 2022Q1

REPORT INFORMATION
  Report Type: Spontaneous
  Country: CN (occurrence: CN)
  Receive Date: 20210324
  Receipt Date: 20220128
  Transmission Date: 20220423
  Serious: Yes (Other)
  Sender: FDA-Public Use
  Company Number: CN-PFIZER INC-2021269566

PATIENT
  Age: 17 Year
  Sex: Female
  Weight: 57 kg

DRUGS (4)
  1. HEMABATE [Suspect]
     Active Substance: CARBOPROST TROMETHAMINE
     Indication: Uterine hypotonus
     Dosage: 350 UL(ALSO REPORTED AS 250UG), INJECTED ON THE BOTTOM OF THE UTERUS,1X/DAY
     Route: 015
     Dates: start: 20210308, end: 20210308
  2. HEMABATE [Suspect]
     Active Substance: CARBOPROST TROMETHAMINE
     Indication: Postpartum haemorrhage
  3. SODIUM CHLORIDE [Concomitant]
     Active Substance: SODIUM CHLORIDE
     Indication: Vehicle solution use
     Dosage: 500.000 ML, 1X/DAY
     Route: 041
     Dates: start: 20210308, end: 20210308
  4. OXYTOCIN [Concomitant]
     Active Substance: OXYTOCIN
     Indication: Uterine hypotonus
     Dosage: 10 IU, 1X/DAY
     Route: 041
     Dates: start: 20210308, end: 20210308

REACTIONS (5)
  - Headache [Recovered/Resolved]
  - Blood pressure increased [Recovered/Resolved]
  - Swelling [Unknown]
  - Off label use [Recovered/Resolved]
  - Product use issue [Recovered/Resolved]

NARRATIVE: CASE EVENT DATE: 20210308
